FAERS Safety Report 15907292 (Version 3)
Quarter: 2019Q1

REPORT INFORMATION
  Report Type: Spontaneous
  Country: US (occurrence: US)
  Receive Date: 20190204
  Receipt Date: 20190226
  Transmission Date: 20190417
  Serious: No
  Sender: FDA-Public Use
  Company Number: US-PFIZER INC-2019049008

PATIENT
  Age: 85 Year
  Sex: Male

DRUGS (1)
  1. XELJANZ XR [Suspect]
     Active Substance: TOFACITINIB CITRATE
     Dosage: 11 MG, UNK

REACTIONS (6)
  - Sleep disorder [Unknown]
  - Malaise [Unknown]
  - Cough [Unknown]
  - Asthenia [Unknown]
  - Hypoacusis [Unknown]
  - Nasopharyngitis [Unknown]
